FAERS Safety Report 4273963-5 (Version None)
Quarter: 2004Q1

REPORT INFORMATION
  Report Type: 
  Country: None (occurrence: None)
  Receive Date: 20040115
  Receipt Date: 20040109
  Transmission Date: 20041129
  Serious: Yes (Hospitalization)
  Sender: FDA-Public Use
  Company Number: 2004193432JP

PATIENT
  Age: 53 Year
  Sex: Male

DRUGS (2)
  1. CAMPTOSAR [Suspect]
     Indication: GASTRIC CANCER
     Dosage: 80 MG/M2, CYCLIC, IV DRIP
     Route: 041
     Dates: start: 20031002, end: 20031202
  2. TS-1 (TEGAFUR, GIMESTAT, OTASTAT POTASSIUM) [Suspect]
     Indication: GASTRIC CANCER
     Dosage: ORAL
     Route: 048
     Dates: start: 20031002

REACTIONS (3)
  - DISORIENTATION [None]
  - HEPATIC ENCEPHALOPATHY [None]
  - THROMBOCYTOPENIA [None]
